FAERS Safety Report 20514076 (Version 1)
Quarter: 2022Q1

REPORT INFORMATION
  Report Type: Spontaneous
  Country: US (occurrence: US)
  Receive Date: 20220224
  Receipt Date: 20220224
  Transmission Date: 20220423
  Serious: No
  Sender: FDA-Public Use
  Company Number: US-AMNEAL PHARMACEUTICALS-2021-AMRX-03470

PATIENT
  Sex: Female

DRUGS (5)
  1. RYTARY [Suspect]
     Active Substance: CARBIDOPA\LEVODOPA
     Indication: Product used for unknown indication
     Dosage: 23.75/95MG, 3 CAPSULES, 4X/DAY
     Route: 048
  2. RYTARY [Suspect]
     Active Substance: CARBIDOPA\LEVODOPA
     Dosage: 23.75/95MG, 2 CAPSULES, 3X/DAY
     Route: 048
     Dates: start: 20200910
  3. RYTARY [Suspect]
     Active Substance: CARBIDOPA\LEVODOPA
     Dosage: 23.75/95MG, 3 CAPSULES, BEDTIME
     Route: 048
     Dates: start: 20200910
  4. RYTARY [Suspect]
     Active Substance: CARBIDOPA\LEVODOPA
     Dosage: 2-3 CAPSULES, DAILY
     Route: 048
     Dates: start: 20210817
  5. RYTARY [Suspect]
     Active Substance: CARBIDOPA\LEVODOPA
     Dosage: 3 CAPSULES, BEDTIME
     Route: 048
     Dates: start: 20210817

REACTIONS (3)
  - Pain [Unknown]
  - Musculoskeletal stiffness [Unknown]
  - On and off phenomenon [Unknown]
